FAERS Safety Report 10951804 (Version 7)
Quarter: 2017Q1

REPORT INFORMATION
  Report Type: Report from Study
  Country: TW (occurrence: TW)
  Receive Date: 20150325
  Receipt Date: 20170330
  Transmission Date: 20170428
  Serious: Yes (Hospitalization)
  Sender: FDA-Public Use
  Company Number: TW-ROCHE-1554571

PATIENT
  Age: 39 Year
  Sex: Female
  Weight: 57.4 kg

DRUGS (20)
  1. CYCLOPHOSPHAMIDE. [Suspect]
     Active Substance: CYCLOPHOSPHAMIDE
     Indication: HER-2 POSITIVE BREAST CANCER
     Route: 065
     Dates: start: 20140715
  2. TELBIVUDINE [Concomitant]
     Active Substance: TELBIVUDINE
     Indication: HEPATITIS B
     Route: 065
     Dates: start: 20140801, end: 20150316
  3. PERTUZUMAB [Suspect]
     Active Substance: PERTUZUMAB
     Dosage: MAINTENANCE DOSE?DATE OF MOST RECENT DOSE OF PERTUZUMAB PRIOR TO AE 17 FEB 2015
     Route: 042
     Dates: start: 20141028
  4. ALPRALINE (TAIWAN) [Concomitant]
     Indication: INSOMNIA
     Route: 065
     Dates: start: 20141229
  5. TELBIVUDINE [Concomitant]
     Active Substance: TELBIVUDINE
     Route: 065
     Dates: start: 20140709, end: 20150306
  6. PROCATEROL HCL [Concomitant]
     Indication: NAUSEA
     Route: 065
     Dates: start: 20150914, end: 20160314
  7. NINCORT [Concomitant]
     Indication: MUCOSAL INFLAMMATION
     Route: 048
     Dates: start: 20140804, end: 20160315
  8. TRASTUZUMAB EMTANSINE [Suspect]
     Active Substance: ADO-TRASTUZUMAB EMTANSINE
     Indication: HER-2 POSITIVE BREAST CANCER
     Dosage: DATE OF MOST RECENT DOSE OF TRASTUZUMAB EMTANSINE PRIOR TO AE ONSET 17 FEB 2015 208.8 MG (3.6 MG/KG)
     Route: 042
     Dates: start: 20141007
  9. PERTUZUMAB [Suspect]
     Active Substance: PERTUZUMAB
     Indication: HER-2 POSITIVE BREAST CANCER
     Dosage: LOADING DOSE
     Route: 042
     Dates: start: 20141007, end: 20141007
  10. TAMOXIFEN [Concomitant]
     Active Substance: TAMOXIFEN
     Route: 065
     Dates: start: 20141229
  11. HUMAN CHORIONIC GONADOTROPIN [Concomitant]
     Active Substance: GONADOTROPHIN, CHORIONIC
     Route: 065
     Dates: start: 20150407, end: 20150412
  12. NAPOSIN [Concomitant]
     Indication: PAIN
     Route: 065
     Dates: start: 20150224, end: 20150303
  13. RINDERON V [Concomitant]
     Active Substance: BETAMETHASONE VALERATE
     Indication: ECZEMA
     Route: 065
     Dates: start: 20150224, end: 20150317
  14. CUTIVATE [Concomitant]
     Active Substance: FLUTICASONE PROPIONATE
     Indication: HAEMORRHOIDS
     Dosage: 5G/TUBE
     Route: 065
     Dates: start: 20150119, end: 20150216
  15. EPIRUBICIN [Suspect]
     Active Substance: EPIRUBICIN
     Indication: HER-2 POSITIVE BREAST CANCER
     Route: 065
     Dates: start: 20140715
  16. TETRACYCLINE [Concomitant]
     Active Substance: TETRACYCLINE
     Indication: CONJUNCTIVITIS
     Route: 047
     Dates: start: 20140728, end: 20160220
  17. NICORT [Concomitant]
     Indication: MOUTH ULCERATION
     Route: 048
     Dates: start: 20150420, end: 20150427
  18. RINDERON V [Concomitant]
     Active Substance: BETAMETHASONE VALERATE
     Indication: CHEMOTHERAPY
     Route: 065
     Dates: start: 20150210, end: 20150317
  19. NACID (TAIWAN) [Concomitant]
     Indication: GASTRIC DILATATION
     Route: 065
     Dates: start: 20150914, end: 20160314
  20. ALLEGRA [Concomitant]
     Active Substance: FEXOFENADINE HYDROCHLORIDE
     Indication: ECZEMA
     Route: 065
     Dates: start: 20150119, end: 20150216

REACTIONS (1)
  - Platelet count decreased [Recovered/Resolved]

NARRATIVE: CASE EVENT DATE: 20150119
